FAERS Safety Report 5351889-3 (Version None)
Quarter: 2007Q2

REPORT INFORMATION
  Report Type: 
  Country: None (occurrence: None)
  Receive Date: 20070609
  Receipt Date: 20070529
  Transmission Date: 20071010
  Serious: Yes (Other)
  Sender: FDA-Public Use
  Company Number: BR-ABBOTT-07P-020-0368682-00

PATIENT
  Sex: Male
  Weight: 82 kg

DRUGS (13)
  1. DEPAKOTE ER [Suspect]
     Indication: AGGRESSION
     Route: 048
     Dates: start: 20060501
  2. DEPAKOTE ER [Suspect]
     Indication: EPILEPSY
     Route: 048
  3. DEPAKOTE ER [Suspect]
     Route: 048
     Dates: end: 20070401
  4. DEPAKOTE ER [Suspect]
     Route: 048
     Dates: start: 20070401
  5. TRILEPTAL [Concomitant]
     Indication: AGGRESSION
     Route: 048
     Dates: start: 19940101
  6. TRILEPTAL [Concomitant]
     Indication: EPILEPSY
  7. LEVOTHYROXINE SODIUM [Concomitant]
     Indication: HYPOTHYROIDISM
     Dates: start: 20000101
  8. OMEPRAZOLE [Concomitant]
     Indication: PROPHYLAXIS AGAINST GASTROINTESTINAL ULCER
     Route: 048
     Dates: start: 20040101
  9. BUDESONIDE [Concomitant]
     Indication: RHINITIS
  10. ANTIHISTAMINES [Concomitant]
     Indication: DRUG USE FOR UNKNOWN INDICATION
  11. COLINA / INOSITOL [Concomitant]
     Indication: LIVER DISORDER
  12. RAMIPRIL / AMLODIPINE / ATENOLOL [Concomitant]
     Indication: HYPERTENSION
  13. VITAMIN B [Concomitant]
     Indication: DRUG USE FOR UNKNOWN INDICATION

REACTIONS (11)
  - ABDOMINAL PAIN UPPER [None]
  - ACNE [None]
  - AGGRESSION [None]
  - DRY MOUTH [None]
  - EPILEPSY [None]
  - HEADACHE [None]
  - HEPATIC PAIN [None]
  - PRURITUS [None]
  - THIRST [None]
  - TREMOR [None]
  - VASCULITIS [None]
